FAERS Safety Report 9570797 (Version 2)
Quarter: 2013Q4

REPORT INFORMATION
  Report Type: Spontaneous
  Country: US (occurrence: US)
  Receive Date: 20131001
  Receipt Date: 20131016
  Transmission Date: 20140711
  Serious: Yes (Other)
  Sender: FDA-Public Use
  Company Number: US-AMGEN-USASP2013067242

PATIENT
  Age: 79 Year
  Sex: Female
  Weight: 53.06 kg

DRUGS (6)
  1. PROLIA [Suspect]
     Indication: PRODUCT USED FOR UNKNOWN INDICATION
     Dosage: 60 MG/ML, Q6MO
     Route: 058
     Dates: start: 20130318
  2. SYNTHROID [Concomitant]
     Indication: HYPOTHYROIDISM
     Dosage: 100 MG, QD
     Route: 048
  3. GABAPENTIN [Concomitant]
     Indication: BACK PAIN
     Dosage: 300 MG, BID
     Route: 048
  4. TRAMADOL [Concomitant]
     Indication: BACK PAIN
     Dosage: 50 MG, BID
     Route: 048
  5. ZOCOR [Concomitant]
     Indication: HYPERCHOLESTEROLAEMIA
     Dosage: 10 MG, QD
     Route: 048
  6. ASPIRIN [Concomitant]
     Indication: PROPHYLAXIS
     Dosage: 81 MG, QD
     Route: 048

REACTIONS (4)
  - Immunodeficiency [Unknown]
  - Tooth infection [Unknown]
  - Tooth disorder [Unknown]
  - Tooth resorption [Not Recovered/Not Resolved]
